FAERS Safety Report 18084903 (Version 1)
Quarter: 2020Q3

REPORT INFORMATION
  Report Type: Report from Study
  Country: US (occurrence: US)
  Receive Date: 20200729
  Receipt Date: 20200729
  Transmission Date: 20201103
  Serious: Yes (Other)
  Sender: FDA-Public Use
  Company Number: US-AUROBINDO-AUR-APL-2020-036122

PATIENT

DRUGS (1)
  1. EVOMELA [Suspect]
     Active Substance: MELPHALAN HYDROCHLORIDE
     Indication: AMYLOIDOSIS
     Dosage: UNK
     Route: 065

REACTIONS (32)
  - Syncope [Recovered/Resolved]
  - Anaemia [Not Recovered/Not Resolved]
  - Hypomagnesaemia [Not Recovered/Not Resolved]
  - Urinary retention [Recovered/Resolved]
  - White blood cell count [Recovered/Resolved]
  - Lymphocyte count [Recovered/Resolved]
  - Dyspepsia [Not Recovered/Not Resolved]
  - Hypermagnesaemia [Recovered/Resolved]
  - Musculoskeletal disorder [Recovered/Resolved]
  - Constipation [Recovered/Resolved]
  - Pyrexia [Recovered/Resolved]
  - Hypocalcaemia [Not Recovered/Not Resolved]
  - Hyponatraemia [Recovered/Resolved]
  - Connective tissue disorder [Recovered/Resolved]
  - Blood alkaline phosphatase [Not Recovered/Not Resolved]
  - Anxiety [Recovered/Resolved]
  - Diarrhoea [Recovered/Resolved]
  - Blood disorder [Not Recovered/Not Resolved]
  - Fatigue [Recovered/Resolved]
  - Hyperuricaemia [Recovered/Resolved]
  - Hypophosphataemia [Recovered/Resolved]
  - Joint dislocation [Recovered/Resolved]
  - Platelet count decreased [Not Recovered/Not Resolved]
  - Depression [Not Recovered/Not Resolved]
  - Dizziness [Not Recovered/Not Resolved]
  - Dysphagia [Not Recovered/Not Resolved]
  - Sinus tachycardia [Not Recovered/Not Resolved]
  - Abdominal pain [Not Recovered/Not Resolved]
  - Hypoalbuminaemia [Not Recovered/Not Resolved]
  - Hypotension [Not Recovered/Not Resolved]
  - Rash maculo-papular [Not Recovered/Not Resolved]
  - Lymphatic disorder [Not Recovered/Not Resolved]

NARRATIVE: CASE EVENT DATE: 20181126
